FAERS Safety Report 4489153-7 (Version None)
Quarter: 2004Q4

REPORT INFORMATION
  Report Type: 
  Country: None (occurrence: None)
  Receive Date: 20041028
  Receipt Date: 20041021
  Transmission Date: 20050328
  Serious: Yes (Death, Hospitalization)
  Sender: FDA-Public Use
  Company Number: 04-10-1485

PATIENT
  Age: 52 Year
  Sex: Male

DRUGS (1)
  1. CLOZAPINE [Suspect]
     Dosage: ORAL
     Route: 048
     Dates: start: 20041001, end: 20041001

REACTIONS (5)
  - COMA [None]
  - EXCORIATION [None]
  - FALL [None]
  - GAIT DISTURBANCE [None]
  - SINUSITIS [None]
